FAERS Safety Report 6983323-1 (Version None)
Quarter: 2010Q3

REPORT INFORMATION
  Report Type: 
  Country: None (occurrence: None)
  Receive Date: 20100914
  Receipt Date: 20100806
  Transmission Date: 20110219
  Serious: No
  Sender: FDA-Public Use
  Company Number: US-PFIZER INC-2010094508

PATIENT
  Sex: Female
  Weight: 59 kg

DRUGS (7)
  1. LYRICA [Suspect]
     Indication: SURGERY
     Dosage: 75 MG, 1X/DAY
     Route: 048
     Dates: start: 20100715
  2. LYRICA [Suspect]
     Dosage: 75 MG, 2X/DAY
     Route: 048
     Dates: start: 20100701
  3. FISH OIL [Concomitant]
     Dosage: UNK
  4. ESTRATEST H.S. [Concomitant]
     Dosage: UNK
  5. CITRACAL [Concomitant]
     Dosage: UNK
  6. VITAMIN B [Concomitant]
     Dosage: UNK
  7. COSAMIN [Concomitant]
     Dosage: UNK

REACTIONS (2)
  - ARTHRALGIA [None]
  - SLEEP DISORDER [None]
